FAERS Safety Report 9157684 (Version 2)
Quarter: 2013Q2

REPORT INFORMATION
  Report Type: Spontaneous
  Country: IT (occurrence: None)
  Receive Date: 20130212
  Receipt Date: 20130405
  Transmission Date: 20140414
  Serious: Yes (Death, Other)
  Sender: FDA-Public Use
  Company Number: MC201300053

PATIENT
  Age: 47 Year
  Sex: Male

DRUGS (5)
  1. ANGIOMAX [Suspect]
     Indication: ANTICOAGULANT THERAPY
     Dosage: 0.025 MG/KG/HR, INFUSION, INTRAVENOUS
     Route: 042
  2. ANGIOMAX [Suspect]
     Indication: EXTRACORPOREAL MEMBRANE OXYGENATION
     Dosage: 0.025 MG/KG/HR, INFUSION, INTRAVENOUS
     Route: 042
  3. H2-RECEPTOR ANTAGONISTS [Concomitant]
  4. CEPHAZOLIN [Concomitant]
  5. DIURETICS [Concomitant]

REACTIONS (6)
  - Thrombosis [None]
  - Off label use [None]
  - Sepsis [None]
  - Pneumonia staphylococcal [None]
  - Acute myocardial infarction [None]
  - Thrombosis in device [None]
